FAERS Safety Report 5720986-2 (Version None)
Quarter: 2008Q2

REPORT INFORMATION
  Report Type: 
  Country: None (occurrence: None)
  Receive Date: 20080429
  Receipt Date: 20080416
  Transmission Date: 20081010
  Serious: No
  Sender: FDA-Public Use
  Company Number: US-ASTRAZENECA-2008UW07869

PATIENT

DRUGS (4)
  1. SEROQUEL [Suspect]
     Route: 048
  2. TRILEPTAL [Concomitant]
  3. STRATTERA [Concomitant]
  4. ABILIFY [Concomitant]

REACTIONS (2)
  - NEUTROPHIL COUNT DECREASED [None]
  - WHITE BLOOD CELL COUNT DECREASED [None]
